FAERS Safety Report 5241583-1 (Version None)
Quarter: 2007Q1

REPORT INFORMATION
  Report Type: 
  Country: None (occurrence: None)
  Receive Date: 20070220
  Receipt Date: 20070209
  Transmission Date: 20070707
  Serious: Yes (Life-Threatening)
  Sender: FDA-Public Use
  Company Number: JP-AVENTIS-200710637GDDC

PATIENT
  Age: 66 Year
  Sex: Female
  Weight: 47 kg

DRUGS (7)
  1. RIFADIN [Suspect]
     Route: 048
     Dates: start: 20060831, end: 20060913
  2. RIFADIN [Suspect]
     Route: 048
     Dates: start: 20060831, end: 20060913
  3. ISONIAZID [Suspect]
     Route: 048
     Dates: start: 20060831, end: 20060913
  4. ISONIAZID [Suspect]
     Route: 048
     Dates: start: 20060831, end: 20060913
  5. PYRAMIDE [Concomitant]
     Route: 048
     Dates: start: 20060831, end: 20060913
  6. EBUTOL                             /00022301/ [Concomitant]
     Route: 048
     Dates: start: 20060831, end: 20060913
  7. RED BLOOD CELLS [Concomitant]
     Dates: start: 20060914

REACTIONS (1)
  - INTERSTITIAL LUNG DISEASE [None]
